FAERS Safety Report 5030570-4 (Version None)
Quarter: 2006Q2

REPORT INFORMATION
  Report Type: 
  Country: None (occurrence: None)
  Receive Date: 20060615
  Receipt Date: 20060603
  Transmission Date: 20061013
  Serious: Yes (Other)
  Sender: FDA-Public Use
  Company Number: 14170

PATIENT
  Age: 72 Year
  Sex: Male
  Weight: 77.2 kg

DRUGS (2)
  1. AMIODARONE HCL [Suspect]
     Dosage: 200 MG DAILY
     Dates: start: 20040710
  2. SIMVASTATIN [Suspect]
     Dosage: 80 MG DAILY
     Dates: start: 20040813

REACTIONS (5)
  - AZOTAEMIA [None]
  - DRUG INTERACTION [None]
  - HEPATOTOXICITY [None]
  - RENAL FAILURE [None]
  - RHABDOMYOLYSIS [None]
